FAERS Safety Report 5012106-7 (Version None)
Quarter: 2006Q2

REPORT INFORMATION
  Report Type: 
  Country: None (occurrence: None)
  Receive Date: 20060524
  Receipt Date: 20060515
  Transmission Date: 20061013
  Serious: Yes (Other)
  Sender: FDA-Public Use
  Company Number: 2006064207

PATIENT
  Age: 74 Year
  Sex: Female
  Weight: 79.3795 kg

DRUGS (6)
  1. LIPITOR [Suspect]
     Indication: BLOOD TRIGLYCERIDES INCREASED
     Dosage: 20 MG (20 MG, 1 IN 1 D), ORAL
     Route: 048
     Dates: end: 20060324
  2. ARTHROTEC [Concomitant]
  3. GLUCOVANCE [Concomitant]
  4. AMITRIPTYLINE HCL [Concomitant]
  5. DORAL [Concomitant]
  6. OXYCONTIN [Concomitant]

REACTIONS (3)
  - BONE DISORDER [None]
  - ROTATOR CUFF SYNDROME [None]
  - SHOULDER PAIN [None]
